FAERS Safety Report 5636291-9 (Version None)
Quarter: 2008Q1

REPORT INFORMATION
  Report Type: 
  Country: None (occurrence: None)
  Receive Date: 20080225
  Receipt Date: 20080213
  Transmission Date: 20080703
  Serious: Yes (Death, Hospitalization, Other)
  Sender: FDA-Public Use
  Company Number: FR-BRISTOL-MYERS SQUIBB COMPANY-14044077

PATIENT
  Age: 11 Year
  Sex: Male

DRUGS (4)
  1. HOLOXAN [Suspect]
     Indication: CHONDROSARCOMA
     Route: 042
     Dates: start: 20070920, end: 20071104
  2. HOLOXAN [Suspect]
     Indication: METASTASES TO LUNG
     Route: 042
     Dates: start: 20070920, end: 20071104
  3. ADRIAMYCIN PFS [Suspect]
     Dates: start: 20070920, end: 20071104
  4. UROMITEXAN [Concomitant]
     Route: 042
     Dates: start: 20070901, end: 20071101

REACTIONS (7)
  - ANAL INFLAMMATION [None]
  - COMA [None]
  - ENCEPHALITIS [None]
  - FEBRILE BONE MARROW APLASIA [None]
  - HYPOTENSION [None]
  - MULTI-ORGAN FAILURE [None]
  - VOMITING [None]
